FAERS Safety Report 6713918-1 (Version None)
Quarter: 2010Q2

REPORT INFORMATION
  Report Type: 
  Country: None (occurrence: None)
  Receive Date: 20100426
  Receipt Date: 20100222
  Transmission Date: 20101027
  Serious: Yes (Hospitalization)
  Sender: FDA-Public Use
  Company Number: 2009BI041433

PATIENT
  Age: 62 Year
  Sex: Female
  Weight: 75.7507 kg

DRUGS (2)
  1. TYSABRI [Suspect]
     Indication: MULTIPLE SCLEROSIS
     Dosage: 300 MG;QM;IV
     Route: 042
     Dates: start: 20071001, end: 20091101
  2. AVONEX [Concomitant]

REACTIONS (8)
  - ABDOMINAL PAIN [None]
  - ABDOMINAL PAIN UPPER [None]
  - ADVERSE DRUG REACTION [None]
  - DEPRESSION [None]
  - DIARRHOEA [None]
  - GOITRE [None]
  - PYREXIA [None]
  - WHITE BLOOD CELL COUNT INCREASED [None]
